FAERS Safety Report 4649108-6 (Version None)
Quarter: 2005Q2

REPORT INFORMATION
  Report Type: 
  Country: None (occurrence: None)
  Receive Date: 20050429
  Receipt Date: 20041203
  Transmission Date: 20051028
  Serious: Yes (Other)
  Sender: FDA-Public Use
  Company Number: GB-GLAXOSMITHKLINE-B0359746A

PATIENT
  Sex: Female

DRUGS (3)
  1. PAROXETINE HCL [Suspect]
     Indication: DEPRESSION
     Route: 065
     Dates: start: 19960701
  2. LOFEPRAMINE [Concomitant]
     Route: 065
  3. ALCOHOL [Concomitant]
     Route: 065

REACTIONS (7)
  - ABDOMINAL DISCOMFORT [None]
  - DRUG WITHDRAWAL SYNDROME [None]
  - ILL-DEFINED DISORDER [None]
  - INTENTIONAL MISUSE [None]
  - MALAISE [None]
  - OVERDOSE [None]
  - SUICIDE ATTEMPT [None]
